FAERS Safety Report 6767638-8 (Version None)
Quarter: 2010Q2

REPORT INFORMATION
  Report Type: 
  Country: None (occurrence: None)
  Receive Date: 20100614
  Receipt Date: 20100607
  Transmission Date: 20101027
  Serious: Yes (Disabling)
  Sender: FDA-Public Use
  Company Number: US-ASTRAZENECA-2010SE26558

PATIENT
  Age: 52 Year
  Sex: Male
  Weight: 97.5 kg

DRUGS (1)
  1. CRESTOR [Suspect]
     Route: 048

REACTIONS (6)
  - HYPOKINESIA [None]
  - JOINT STIFFNESS [None]
  - LIGAMENT DISORDER [None]
  - MUSCLE DISORDER [None]
  - MUSCULOSKELETAL STIFFNESS [None]
  - TENDON DISORDER [None]
